FAERS Safety Report 7670208-0 (Version None)
Quarter: 2011Q3

REPORT INFORMATION
  Report Type: 
  Country: None (occurrence: None)
  Receive Date: 20110808
  Receipt Date: 20110729
  Transmission Date: 20111222
  Serious: Yes (Hospitalization)
  Sender: FDA-Public Use
  Company Number: US-RB-028010-11

PATIENT
  Age: 46 Year
  Sex: Female

DRUGS (2)
  1. CRACK COCAINE [Suspect]
     Indication: PRODUCT USED FOR UNKNOWN INDICATION
     Dosage: DOSING INFORMATION UNKNOWN
     Route: 065
  2. SUBOXONE [Suspect]
     Indication: PRODUCT USED FOR UNKNOWN INDICATION
     Dosage: DOSING INFORMATION UNKNOWN
     Route: 065
     Dates: start: 20110103, end: 20110101

REACTIONS (4)
  - MANIA [None]
  - MEMORY IMPAIRMENT [None]
  - TOOTH DISORDER [None]
  - DRUG ABUSE [None]
